FAERS Safety Report 18459474 (Version 8)
Quarter: 2022Q1

REPORT INFORMATION
  Report Type: Spontaneous
  Country: US (occurrence: US)
  Receive Date: 20201103
  Receipt Date: 20220321
  Transmission Date: 20220424
  Serious: Yes (Other)
  Sender: FDA-Public Use
  Company Number: US-PFIZER INC-2020424167

PATIENT
  Age: 71 Year
  Sex: Female

DRUGS (3)
  1. INLYTA [Suspect]
     Active Substance: AXITINIB
     Dosage: 5 MG
     Dates: start: 20201022
  2. INLYTA [Suspect]
     Active Substance: AXITINIB
     Dosage: UNK
     Dates: start: 20210315
  3. KEYTRUDA [Suspect]
     Active Substance: PEMBROLIZUMAB
     Dosage: UNK

REACTIONS (5)
  - Renal impairment [Not Recovered/Not Resolved]
  - Blood pressure diastolic increased [Unknown]
  - Hypertension [Recovered/Resolved]
  - Decreased appetite [Unknown]
  - Lichen planus [Unknown]

NARRATIVE: CASE EVENT DATE: 20201109
